FAERS Safety Report 6425135-3 (Version None)
Quarter: 2009Q4

REPORT INFORMATION
  Report Type: 
  Country: None (occurrence: None)
  Receive Date: 20091029
  Receipt Date: 20081208
  Transmission Date: 20100525
  Serious: Yes (Other)
  Sender: FDA-Public Use
  Company Number: 200818288US

PATIENT
  Sex: Female

DRUGS (4)
  1. TAXOTERE [Suspect]
     Indication: BREAST CANCER
     Dosage: 40 MCG CYC IV
     Route: 042
     Dates: start: 20080101
  2. TAXOTERE [Suspect]
     Indication: BREAST CANCER
     Dosage: 40 MG CYC IV
     Route: 042
  3. CARBOPLATIN [Suspect]
     Indication: BREAST CANCER
     Dosage: 275 MG CYC IV
     Route: 042
  4. CARBOPLATIN [Suspect]
     Indication: BREAST CANCER
     Dosage: 275 MG CYC IV
     Route: 042

REACTIONS (5)
  - ANAPHYLACTIC SHOCK [None]
  - CONVULSION [None]
  - DYSPNOEA [None]
  - FOAMING AT MOUTH [None]
  - HYPOTENSION [None]
